FAERS Safety Report 7930692-1 (Version None)
Quarter: 2011Q4

REPORT INFORMATION
  Report Type: 
  Country: None (occurrence: None)
  Receive Date: 20111121
  Receipt Date: 20111114
  Transmission Date: 20120403
  Serious: Yes (Other)
  Sender: FDA-Public Use
  Company Number: US-ABBOTT-11P-163-0873872-00

PATIENT
  Sex: Female
  Weight: 120.31 kg

DRUGS (5)
  1. SINGULAIR [Concomitant]
     Indication: SEASONAL ALLERGY
  2. FOLIC ACID [Concomitant]
     Indication: SCLERITIS
  3. HUMIRA [Suspect]
     Dates: start: 20111111
  4. HUMIRA [Suspect]
     Indication: SCLERITIS
     Dates: start: 20100101, end: 20110720
  5. ALLEGRA [Concomitant]
     Indication: SEASONAL ALLERGY

REACTIONS (5)
  - WEIGHT CONTROL [None]
  - EYE PAIN [None]
  - OCULAR HYPERAEMIA [None]
  - OFF LABEL USE [None]
  - SCLERITIS [None]
